FAERS Safety Report 18191803 (Version 1)
Quarter: 2020Q3

REPORT INFORMATION
  Report Type: Spontaneous
  Country: US (occurrence: US)
  Receive Date: 20200824
  Receipt Date: 20200824
  Transmission Date: 20201103
  Serious: Yes (Life-Threatening, Hospitalization, Other)
  Sender: FDA-Public Use
  Company Number: None

PATIENT
  Age: 67 Year
  Sex: Female

DRUGS (1)
  1. INLYTA [Suspect]
     Active Substance: AXITINIB
     Indication: RENAL CANCER
     Route: 048
     Dates: start: 20200801, end: 20200810

REACTIONS (4)
  - Brain neoplasm malignant [None]
  - Mobility decreased [None]
  - Seizure [None]
  - Hypoaesthesia [None]

NARRATIVE: CASE EVENT DATE: 20200824
